FAERS Safety Report 13039570 (Version 1)
Quarter: 2016Q4

REPORT INFORMATION
  Report Type: Spontaneous
  Country: US (occurrence: US)
  Receive Date: 20161218
  Receipt Date: 20161218
  Transmission Date: 20170207
  Serious: Yes (Disabling, Other)
  Sender: FDA-Public Use
  Company Number: None

PATIENT
  Age: 49 Year
  Sex: Male
  Weight: 81 kg

DRUGS (3)
  1. TESTOSTERONE. [Concomitant]
     Active Substance: TESTOSTERONE
  2. AMITIZA [Suspect]
     Active Substance: LUBIPROSTONE
     Indication: CONSTIPATION
     Dosage: ?          OTHER STRENGTH:MCG;QUANTITY:30 CAPSULE(S);?
     Route: 048
     Dates: start: 20161201, end: 20161215
  3. DULCOLAX LAXATIVE [Concomitant]

REACTIONS (5)
  - Palpitations [None]
  - Chest pain [None]
  - Syncope [None]
  - Hypertension [None]
  - Abdominal distension [None]

NARRATIVE: CASE EVENT DATE: 20161214
